FAERS Safety Report 5838781-2 (Version None)
Quarter: 2008Q3

REPORT INFORMATION
  Report Type: 
  Country: None (occurrence: None)
  Receive Date: 20080808
  Receipt Date: 20080729
  Transmission Date: 20090109
  Serious: Yes (Other)
  Sender: FDA-Public Use
  Company Number: US-BAYER-200829625NA

PATIENT
  Sex: Male

DRUGS (1)
  1. TRASYLOL [Suspect]
     Indication: CORONARY ARTERY BYPASS
     Dates: start: 20030701

REACTIONS (5)
  - ANXIETY [None]
  - EMOTIONAL DISTRESS [None]
  - INJURY [None]
  - RENAL FAILURE [None]
  - UNEVALUABLE EVENT [None]
